FAERS Safety Report 22635432 (Version 2)
Quarter: 2024Q2

REPORT INFORMATION
  Report Type: Spontaneous
  Country: US (occurrence: US)
  Receive Date: 20230623
  Receipt Date: 20240503
  Transmission Date: 20240716
  Serious: Yes (Life-Threatening, Hospitalization, Other)
  Sender: FDA-Public Use
  Company Number: US-AUROBINDO-AUR-APL-2023-042621

PATIENT
  Age: 38 Year
  Sex: Male

DRUGS (4)
  1. MYCOPHENOLIC ACID [Suspect]
     Active Substance: MYCOPHENOLIC ACID
     Indication: Immunosuppressant drug therapy
     Dosage: UNK
     Route: 065
     Dates: start: 201911, end: 20200906
  2. PREDNISONE [Suspect]
     Active Substance: PREDNISONE
     Indication: Toxicity to various agents
     Dosage: LOW DOSE
     Route: 065
  3. EVEROLIMUS [Suspect]
     Active Substance: EVEROLIMUS
     Indication: Toxicity to various agents
     Dosage: UNK
     Route: 065
     Dates: start: 20201013, end: 20201101
  4. TACROLIMUS [Suspect]
     Active Substance: TACROLIMUS
     Indication: Toxicity to various agents
     Dosage: UNK
     Route: 065
     Dates: start: 201911

REACTIONS (14)
  - Large intestine perforation [Recovered/Resolved]
  - Peritonitis [Recovered/Resolved]
  - Weight decreased [Recovered/Resolved]
  - Haemoglobin decreased [Unknown]
  - Gastric ulcer perforation [Recovered/Resolved]
  - Gastric ulcer haemorrhage, obstructive [Recovered/Resolved]
  - Ileal ulcer [Recovered/Resolved]
  - Gastrointestinal ulcer perforation [Recovered/Resolved]
  - Oesophageal ulcer [Recovered/Resolved]
  - Gastric perforation [Recovered/Resolved]
  - Diarrhoea haemorrhagic [Recovered/Resolved]
  - Melaena [Recovered/Resolved]
  - Gastrointestinal injury [Recovered/Resolved]
  - Drug interaction [Recovered/Resolved]

NARRATIVE: CASE EVENT DATE: 20200901
